FAERS Safety Report 7118751-7 (Version None)
Quarter: 2010Q4

REPORT INFORMATION
  Report Type: 
  Country: None (occurrence: None)
  Receive Date: 20101123
  Receipt Date: 20101119
  Transmission Date: 20110411
  Serious: Yes (Death)
  Sender: FDA-Public Use
  Company Number: AU-ASTRAZENECA-2010SE55088

PATIENT
  Age: 84 Year
  Sex: Male

DRUGS (1)
  1. ZOLADEX [Suspect]
     Route: 058
     Dates: start: 20071231

REACTIONS (1)
  - DEATH [None]
